FAERS Safety Report 18330692 (Version 2)
Quarter: 2020Q4

REPORT INFORMATION
  Report Type: Spontaneous
  Country: US (occurrence: US)
  Receive Date: 20200930
  Receipt Date: 20201221
  Transmission Date: 20210113
  Serious: Yes (Other)
  Sender: FDA-Public Use
  Company Number: US-PFIZER INC-2020374107

PATIENT
  Age: 29 Year
  Sex: Female

DRUGS (2)
  1. MEPERIDINE HCL [Suspect]
     Active Substance: MEPERIDINE HYDROCHLORIDE
     Dosage: 300 MG
     Route: 042
  2. MEPERIDINE HCL [Suspect]
     Active Substance: MEPERIDINE HYDROCHLORIDE
     Indication: PAIN
     Dosage: 50 MG EVERY 4-6 HOURS FOR A TOTAL OF 60 DOSES OVER TWO WEEKS

REACTIONS (2)
  - Neurotoxicity [Unknown]
  - Generalised tonic-clonic seizure [Unknown]
